FAERS Safety Report 6403532-X (Version None)
Quarter: 2009Q4

REPORT INFORMATION
  Report Type: 
  Country: None (occurrence: None)
  Receive Date: 20091016
  Receipt Date: 20091007
  Transmission Date: 20100525
  Serious: Yes (Hospitalization)
  Sender: FDA-Public Use
  Company Number: FR-NOVOPROD-292609

PATIENT
  Sex: Female

DRUGS (4)
  1. NOVONORM [Suspect]
     Indication: DRUG USE FOR UNKNOWN INDICATION
     Dosage: 12 MG, UNK
     Route: 048
     Dates: start: 20090826, end: 20090827
  2. PREVISCAN                          /00261401/ [Concomitant]
     Dosage: 20 MG, UNK
     Route: 048
     Dates: start: 20090824, end: 20090829
  3. STAGID [Concomitant]
     Dosage: 4X700 MG, UNK
     Dates: start: 20090826, end: 20090827
  4. INIPOMP                            /01263201/ [Concomitant]
     Route: 048
     Dates: start: 20090826, end: 20090827

REACTIONS (4)
  - ERYTHEMA [None]
  - PRURITUS [None]
  - RASH PAPULAR [None]
  - URTICARIA [None]
